FAERS Safety Report 15001528 (Version 1)
Quarter: 2018Q2

REPORT INFORMATION
  Report Type: Spontaneous
  Country: SE (occurrence: SE)
  Receive Date: 20180612
  Receipt Date: 20180612
  Transmission Date: 20180711
  Serious: Yes (Other)
  Sender: FDA-Public Use
  Company Number: SE-PFIZER INC-2018234327

PATIENT
  Age: 68 Year
  Sex: Male

DRUGS (2)
  1. BEHEPAN /00056201/ [Concomitant]
     Active Substance: CYANOCOBALAMIN
     Dates: start: 201606
  2. ATORVASTATIN CALCIUM. [Suspect]
     Active Substance: ATORVASTATIN CALCIUM
     Indication: HYPERLIPIDAEMIA
     Dosage: 20 MG, ONCE A DAY
     Route: 048
     Dates: start: 20170926, end: 20180402

REACTIONS (1)
  - Urinary incontinence [Recovered/Resolved]

NARRATIVE: CASE EVENT DATE: 201710
